FAERS Safety Report 12317809 (Version 2)
Quarter: 2016Q2

REPORT INFORMATION
  Report Type: Spontaneous
  Country: IL (occurrence: IL)
  Receive Date: 20160429
  Receipt Date: 20160505
  Transmission Date: 20160815
  Serious: No
  Sender: FDA-Public Use
  Company Number: IL-ARIAD PHARMACEUTICALS, INC-2016IL006410

PATIENT
  Age: 61 Year
  Sex: Female

DRUGS (1)
  1. ICLUSIG [Suspect]
     Active Substance: PONATINIB
     Indication: CHRONIC MYELOID LEUKAEMIA
     Dosage: 45 MG, QD
     Route: 048
     Dates: start: 2016, end: 2016

REACTIONS (4)
  - Treatment noncompliance [Unknown]
  - Asthenia [Unknown]
  - Bone pain [Unknown]
  - Myalgia [Unknown]
